FAERS Safety Report 7923304-4 (Version None)
Quarter: 2011Q4

REPORT INFORMATION
  Report Type: 
  Country: None (occurrence: None)
  Receive Date: 20111117
  Receipt Date: 20110201
  Transmission Date: 20120403
  Serious: No
  Sender: FDA-Public Use
  Company Number: US-AMGEN-USASP2011006062

PATIENT
  Age: 49 Year
  Sex: Female

DRUGS (1)
  1. ENBREL [Suspect]
     Indication: RHEUMATOID ARTHRITIS
     Dates: start: 20080101

REACTIONS (8)
  - VAGINAL DISORDER [None]
  - UPPER-AIRWAY COUGH SYNDROME [None]
  - SNEEZING [None]
  - INJECTION SITE URTICARIA [None]
  - INJECTION SITE SWELLING [None]
  - ARTHRALGIA [None]
  - JOINT STIFFNESS [None]
  - INJECTION SITE ERYTHEMA [None]
